FAERS Safety Report 26129401 (Version 2)
Quarter: 2025Q4

REPORT INFORMATION
  Report Type: Report from Study
  Country: US (occurrence: US)
  Receive Date: 20251208
  Receipt Date: 20251230
  Transmission Date: 20260118
  Serious: Yes (Hospitalization, Other)
  Sender: BIOCODEX
  Company Number: US-BIOCODEX2-2025001763

PATIENT
  Age: 7 Year
  Sex: Male
  Weight: 18.3 kg

DRUGS (16)
  1. DIACOMIT [Suspect]
     Active Substance: STIRIPENTOL
     Indication: Epilepsy
     Dosage: DAYS 1-7: TAKE 200MG(MIX 1 PACKET (500 MG) IN 100 ML WATER. DRINK 40 ML. BY MOUTH 2 DAILY
     Dates: start: 20251105
  2. DIACOMIT [Suspect]
     Active Substance: STIRIPENTOL
     Dosage: DAYS 8-14: TAKE 275 MG (MIX 1 PACKET 500 MG IN 100 ML WATER. DRINK 55 ML.) 2 TWICE DAILY
     Dates: start: 20251105
  3. DIACOMIT [Suspect]
     Active Substance: STIRIPENTOL
     Dosage: DAYS 15-21: TAKE 375 MG (MIX 1 PACKET 500 MG IN 100 ML WATER. DRINK 75 ML.) 2 TWICE DAILY
     Dates: start: 20251105
  4. DIACOMIT [Suspect]
     Active Substance: STIRIPENTOL
     Dates: start: 20251105
  5. DIACOMIT [Suspect]
     Active Substance: STIRIPENTOL
  6. DIACOMIT [Suspect]
     Active Substance: STIRIPENTOL
  7. DIACOMIT [Suspect]
     Active Substance: STIRIPENTOL
  8. DIACOMIT [Suspect]
     Active Substance: STIRIPENTOL
  9. CLOBAZAM [Concomitant]
     Active Substance: CLOBAZAM
     Indication: Product used for unknown indication
  10. CLOBAZAM [Concomitant]
     Active Substance: CLOBAZAM
  11. DIAZEPAM [Concomitant]
     Active Substance: DIAZEPAM
     Indication: Product used for unknown indication
  12. DIAZEPAM [Concomitant]
     Active Substance: DIAZEPAM
  13. LAMICTAL [Concomitant]
     Active Substance: LAMOTRIGINE
     Indication: Product used for unknown indication
  14. LAMICTAL [Concomitant]
     Active Substance: LAMOTRIGINE
  15. PHENOBARBITAL [Concomitant]
     Active Substance: PHENOBARBITAL
     Indication: Product used for unknown indication
  16. PHENOBARBITAL [Concomitant]
     Active Substance: PHENOBARBITAL

REACTIONS (5)
  - Off label use [Unknown]
  - Product preparation issue [Unknown]
  - Hospitalisation [Unknown]
  - Seizure [Unknown]
  - Drug ineffective for unapproved indication [Unknown]

NARRATIVE: CASE EVENT DATE: 20251105
